FAERS Safety Report 22799364 (Version 3)
Quarter: 2023Q4

REPORT INFORMATION
  Report Type: Spontaneous
  Country: US (occurrence: US)
  Receive Date: 20230808
  Receipt Date: 20231201
  Transmission Date: 20240110
  Serious: No
  Sender: FDA-Public Use
  Company Number: US-PFIZER INC-202300267837

PATIENT
  Age: 68 Year
  Sex: Female
  Weight: 48.99 kg

DRUGS (5)
  1. NURTEC ODT [Suspect]
     Active Substance: RIMEGEPANT SULFATE
     Indication: Migraine
     Dosage: 75 MG, ALTERNATE DAY [1-75MG TABLET EVERY OTHER DAY, PREVENTATIVE]
     Dates: start: 20230703
  2. NURTEC ODT [Suspect]
     Active Substance: RIMEGEPANT SULFATE
     Dosage: 75 MG, ALTERNATE DAY [1-75MG TABLET EVERY OTHER DAY, PREVENTATIVE]
     Dates: start: 20230718
  3. NURTEC ODT [Suspect]
     Active Substance: RIMEGEPANT SULFATE
     Dosage: 75 MG, ALTERNATE DAY [1-75MG TABLET EVERY OTHER DAY, PREVENTATIVE]
     Dates: start: 20230728
  4. NURTEC ODT [Suspect]
     Active Substance: RIMEGEPANT SULFATE
     Dosage: PLACE 1 TABLET ON THE TONGUE AND ALLOW TO DISSOLVE AS NEEDED
     Route: 048
  5. METOPROLOL [Concomitant]
     Active Substance: METOPROLOL
     Indication: Heart rate increased
     Dosage: UNK

REACTIONS (1)
  - Therapeutic product effect delayed [Unknown]
